FAERS Safety Report 21154631 (Version 1)
Quarter: 2022Q3

REPORT INFORMATION
  Report Type: Report from Study
  Country: CA (occurrence: CA)
  Receive Date: 20220801
  Receipt Date: 20220801
  Transmission Date: 20221027
  Serious: Yes (Other)
  Sender: FDA-Public Use
  Company Number: CA-BRISTOL-MYERS SQUIBB COMPANY-2022-078654

PATIENT
  Age: 69 Year
  Sex: Male

DRUGS (9)
  1. REVLIMID [Suspect]
     Active Substance: LENALIDOMIDE
     Indication: Myelodysplastic syndrome
     Route: 065
  2. EXJADE [Concomitant]
     Active Substance: DEFERASIROX
     Indication: Myelodysplastic syndrome
     Route: 048
  3. EXJADE [Concomitant]
     Active Substance: DEFERASIROX
     Route: 048
  4. EXJADE [Concomitant]
     Active Substance: DEFERASIROX
     Route: 048
  5. EXJADE [Concomitant]
     Active Substance: DEFERASIROX
     Route: 048
  6. EXJADE [Concomitant]
     Active Substance: DEFERASIROX
     Route: 048
  7. EXJADE [Concomitant]
     Active Substance: DEFERASIROX
     Route: 048
  8. EXJADE [Concomitant]
     Active Substance: DEFERASIROX
     Route: 048
  9. TESTOSTERONE [Concomitant]
     Active Substance: TESTOSTERONE
     Indication: Product used for unknown indication
     Route: 065

REACTIONS (22)
  - Abdominal discomfort [Not Recovered/Not Resolved]
  - Abdominal distension [Not Recovered/Not Resolved]
  - Abdominal pain [Not Recovered/Not Resolved]
  - Arrhythmia [Not Recovered/Not Resolved]
  - Atrial fibrillation [Not Recovered/Not Resolved]
  - Atrial flutter [Not Recovered/Not Resolved]
  - Blood creatinine increased [Not Recovered/Not Resolved]
  - Constipation [Not Recovered/Not Resolved]
  - Diarrhoea [Not Recovered/Not Resolved]
  - Extrasystoles [Not Recovered/Not Resolved]
  - Flatulence [Not Recovered/Not Resolved]
  - Gastrointestinal motility disorder [Not Recovered/Not Resolved]
  - Heart rate increased [Not Recovered/Not Resolved]
  - Heart rate irregular [Not Recovered/Not Resolved]
  - Infection [Not Recovered/Not Resolved]
  - Macular degeneration [Not Recovered/Not Resolved]
  - Neutrophil count decreased [Not Recovered/Not Resolved]
  - Pneumonia bacterial [Not Recovered/Not Resolved]
  - Red blood cell count decreased [Not Recovered/Not Resolved]
  - Renal impairment [Not Recovered/Not Resolved]
  - Serum ferritin increased [Not Recovered/Not Resolved]
  - Tooth infection [Not Recovered/Not Resolved]
